FAERS Safety Report 7353892-0 (Version None)
Quarter: 2011Q1

REPORT INFORMATION
  Report Type: 
  Country: None (occurrence: None)
  Receive Date: 20110315
  Receipt Date: 20101123
  Transmission Date: 20110831
  Serious: No
  Sender: FDA-Public Use
  Company Number: US-BAYER-2010-008094

PATIENT
  Sex: Female
  Weight: 70 kg

DRUGS (7)
  1. CITRACAL [Concomitant]
  2. ASPIRIN [Suspect]
     Indication: ISCHAEMIC HEART DISEASE PROPHYLAXIS
     Dosage: DAILY
     Route: 048
     Dates: start: 20100101
  3. METFORMIN [Concomitant]
  4. METOPROLOL [Concomitant]
  5. MIRALAX [Concomitant]
  6. LISINOPRIL [Concomitant]
  7. CENTRUM SILVER [Concomitant]

REACTIONS (1)
  - HAIR COLOUR CHANGES [None]
